FAERS Safety Report 8657696 (Version 4)
Quarter: 2013Q1

REPORT INFORMATION
  Report Type: Spontaneous
  Country: US (occurrence: US)
  Receive Date: 20120710
  Receipt Date: 20130105
  Transmission Date: 20140127
  Serious: Yes (Hospitalization, Congenital Anomaly, Other)
  Sender: FDA-Public Use
  Company Number: US-JNJFOC-20120701864

PATIENT
  Age: 0 None
  Sex: Male

DRUGS (7)
  1. TOPAMAX [Suspect]
     Indication: FOETAL EXPOSURE DURING PREGNANCY
     Route: 064
  2. TYLENOL [Suspect]
     Route: 064
  3. TYLENOL [Suspect]
     Indication: FOETAL EXPOSURE DURING PREGNANCY
     Route: 064
  4. HYDROCODONE [Suspect]
     Indication: FOETAL EXPOSURE DURING PREGNANCY
     Route: 064
  5. AMOXICILLIN [Suspect]
     Indication: FOETAL EXPOSURE DURING PREGNANCY
     Route: 064
  6. FOLIC ACID [Concomitant]
     Route: 064
  7. PRENATAL VITAMINS [Concomitant]
     Route: 064

REACTIONS (7)
  - Coarctation of the aorta [Recovering/Resolving]
  - Premature baby [Not Recovered/Not Resolved]
  - Developmental delay [Unknown]
  - Hypoglycaemia [Unknown]
  - Ventricular septal defect [Recovering/Resolving]
  - Patent ductus arteriosus [Recovering/Resolving]
  - Dacryostenosis congenital [Unknown]
